FAERS Safety Report 25126162 (Version 1)
Quarter: 2025Q1

REPORT INFORMATION
  Report Type: Spontaneous
  Country: US (occurrence: US)
  Receive Date: 20250326
  Receipt Date: 20250326
  Transmission Date: 20250409
  Serious: Yes (Other)
  Sender: JOHNSON AND JOHNSON
  Company Number: US-JNJFOC-20250362598

PATIENT

DRUGS (1)
  1. INVEGA [Suspect]
     Active Substance: PALIPERIDONE
     Indication: Product used for unknown indication
     Route: 048

REACTIONS (6)
  - Coeliac disease [Unknown]
  - Nausea [Unknown]
  - Dizziness [Unknown]
  - Dry skin [Unknown]
  - Headache [Unknown]
  - Inflammation [Unknown]
